FAERS Safety Report 14454433 (Version 4)
Quarter: 2018Q3

REPORT INFORMATION
  Report Type: Spontaneous
  Country: BR (occurrence: BR)
  Receive Date: 20180129
  Receipt Date: 20180926
  Transmission Date: 20181010
  Serious: Yes (Other)
  Sender: FDA-Public Use
  Company Number: BR-ELI_LILLY_AND_COMPANY-BR201801008647

PATIENT
  Sex: Female

DRUGS (1)
  1. FORTEO [Suspect]
     Active Substance: TERIPARATIDE
     Indication: PRODUCT USED FOR UNKNOWN INDICATION
     Dosage: UNK, UNKNOWN
     Route: 065
     Dates: start: 20170707

REACTIONS (6)
  - Pain [Not Recovered/Not Resolved]
  - Incorrect drug administration duration [Unknown]
  - Road traffic accident [Unknown]
  - Spinal column injury [Unknown]
  - Osteoporosis [Unknown]
  - Mobility decreased [Unknown]
